FAERS Safety Report 5953557-3 (Version None)
Quarter: 2008Q4

REPORT INFORMATION
  Report Type: 
  Country: None (occurrence: None)
  Receive Date: 20081114
  Receipt Date: 20081104
  Transmission Date: 20090506
  Serious: Yes (Hospitalization, Other)
  Sender: FDA-Public Use
  Company Number: US-ABBOTT-08P-163-0485693-00

PATIENT
  Sex: Female

DRUGS (13)
  1. VICODIN [Suspect]
     Indication: BACK PAIN
     Dosage: 1 PILL EVERY 6 HOURS AS NEEDED FOR PAIN
     Dates: start: 20081011
  2. DEXAMETHASONE 0.5MG TAB [Suspect]
     Indication: BACK PAIN
     Route: 048
     Dates: start: 20081011, end: 20081011
  3. INEGY [Concomitant]
     Indication: BLOOD CHOLESTEROL INCREASED
     Route: 048
  4. ACETYLSALICYLIC ACID SRT [Concomitant]
     Indication: DRUG USE FOR UNKNOWN INDICATION
     Route: 048
  5. NORTRIPTYLINE HCL [Concomitant]
     Indication: DEPRESSION
     Route: 048
  6. NORTRIPTYLINE HCL [Concomitant]
     Indication: ANXIETY
  7. FENOFIBRATE [Concomitant]
     Indication: BLOOD CHOLESTEROL INCREASED
     Route: 048
  8. SITAGLIPTIN PHOSPHATE [Concomitant]
     Indication: DIABETES MELLITUS
     Route: 048
  9. METFORMIN HCL [Concomitant]
     Indication: DRUG USE FOR UNKNOWN INDICATION
     Route: 048
  10. PANTOPRAZOLE SODIUM [Concomitant]
     Indication: DRUG USE FOR UNKNOWN INDICATION
     Route: 048
  11. INSULIN (LANTUS SOLASTAR) [Concomitant]
     Indication: DIABETES MELLITUS
     Route: 058
     Dates: start: 20081101
  12. INSULIN (LANTUS SOLASTAR) [Concomitant]
     Route: 058
     Dates: end: 20081001
  13. INSULIN [Concomitant]
     Indication: DIABETES MELLITUS
     Dosage: DESCRIBED AS SHORT ACTING INSULIN, NOT FURTHER NAMED.
     Route: 058

REACTIONS (11)
  - ACTIVITIES OF DAILY LIVING IMPAIRED [None]
  - BALANCE DISORDER [None]
  - BLOOD GLUCOSE INCREASED [None]
  - BLOOD MAGNESIUM DECREASED [None]
  - CONFUSIONAL STATE [None]
  - DYSARTHRIA [None]
  - GAIT DISTURBANCE [None]
  - HALLUCINATION [None]
  - MEMORY IMPAIRMENT [None]
  - SPEECH DISORDER [None]
  - VOMITING [None]
